FAERS Safety Report 8512780-4 (Version None)
Quarter: 2012Q3

REPORT INFORMATION
  Report Type: 
  Country: None (occurrence: None)
  Receive Date: 20120716
  Receipt Date: 20120702
  Transmission Date: 20120928
  Serious: No
  Sender: FDA-Public Use
  Company Number: US-ASTRAZENECA-2012SE44702

PATIENT
  Sex: Female
  Weight: 49.9 kg

DRUGS (3)
  1. CREON [Concomitant]
     Indication: ENZYME SUPPLEMENTATION
  2. NEXIUM [Suspect]
     Indication: BARRETT'S OESOPHAGUS
     Route: 048
  3. NEXIUM [Suspect]
     Indication: GASTROOESOPHAGEAL REFLUX DISEASE
     Route: 048

REACTIONS (4)
  - DRUG DOSE OMISSION [None]
  - INTENTIONAL DRUG MISUSE [None]
  - FEELING ABNORMAL [None]
  - BARRETT'S OESOPHAGUS [None]
